FAERS Safety Report 17378885 (Version 2)
Quarter: 2020Q2

REPORT INFORMATION
  Report Type: Spontaneous
  Country: US (occurrence: US)
  Receive Date: 20200206
  Receipt Date: 20200420
  Transmission Date: 20200713
  Serious: Yes (Hospitalization)
  Sender: FDA-Public Use
  Company Number: US-009507513-2001USA007208

PATIENT
  Sex: Female
  Weight: 72.12 kg

DRUGS (2)
  1. KEYTRUDA [Suspect]
     Active Substance: PEMBROLIZUMAB
     Indication: METASTATIC RENAL CELL CARCINOMA
     Dosage: 200 MILLIGRAM, Q3W
     Route: 042
     Dates: start: 20191209, end: 20200214
  2. INLYTA [Suspect]
     Active Substance: AXITINIB
     Indication: RENAL CELL CARCINOMA
     Dosage: 300 MILLIGRAM, BID
     Route: 048
     Dates: start: 20191204

REACTIONS (2)
  - Liver function test increased [Recovered/Resolved]
  - Hypertension [Recovered/Resolved with Sequelae]
